FAERS Safety Report 18820305 (Version 8)
Quarter: 2021Q4

REPORT INFORMATION
  Report Type: Spontaneous
  Country: US (occurrence: US)
  Receive Date: 20210202
  Receipt Date: 20211004
  Transmission Date: 20220303
  Serious: No
  Sender: FDA-Public Use
  Company Number: US-GLAXOSMITHKLINE-US2021AMR024495

PATIENT
  Age: 64 Year
  Sex: Female
  Weight: 88 kg

DRUGS (4)
  1. ZEJULA [Suspect]
     Active Substance: NIRAPARIB
     Indication: Ovarian cancer
     Dosage: 200 MG, QD
     Route: 048
     Dates: start: 20210122
  2. ZEJULA [Suspect]
     Active Substance: NIRAPARIB
     Dosage: 200 MG, QD
     Route: 048
  3. ZEJULA [Suspect]
     Active Substance: NIRAPARIB
     Dosage: 100 MG, QD
     Route: 048
  4. ZEJULA [Suspect]
     Active Substance: NIRAPARIB
     Dosage: 100 MG, QD
     Route: 048

REACTIONS (12)
  - Dry mouth [Unknown]
  - Muscle tightness [Recovered/Resolved]
  - Arthralgia [Unknown]
  - Somnolence [Not Recovered/Not Resolved]
  - Hypertension [Recovering/Resolving]
  - Contusion [Unknown]
  - Central venous catheter removal [Unknown]
  - Renal function test abnormal [Unknown]
  - Muscle spasms [Unknown]
  - Product dose omission issue [Unknown]
  - Product monitoring error [Unknown]
  - Product use issue [Unknown]

NARRATIVE: CASE EVENT DATE: 20210201
